FAERS Safety Report 9685217 (Version 1)
Quarter: 2013Q4

REPORT INFORMATION
  Report Type: Spontaneous
  Country: US (occurrence: US)
  Receive Date: 20131113
  Receipt Date: 20131113
  Transmission Date: 20140711
  Serious: Yes (Other)
  Sender: FDA-Public Use
  Company Number: US-SUN PHARMACEUTICAL INDUSTRIES LTD-2013SUN04991

PATIENT
  Age: 43 Year
  Sex: Male

DRUGS (2)
  1. DONEPEZIL HYDROCHLORIDE TABLETS, 5MG [Suspect]
     Indication: DEMENTIA
     Route: 065
  2. DONEPEZIL HYDROCHLORIDE TABLETS, 5MG [Suspect]
     Dosage: 10 MG, OD
     Route: 065

REACTIONS (2)
  - Delirium [Recovering/Resolving]
  - Confusional state [Recovered/Resolved]
